FAERS Safety Report 17419057 (Version 2)
Quarter: 2020Q1

REPORT INFORMATION
  Report Type: Report from Study
  Country: None (occurrence: TW)
  Receive Date: 20200214
  Receipt Date: 20200214
  Transmission Date: 20200409
  Serious: Yes (Death, Other)
  Sender: FDA-Public Use
  Company Number: TW-ABBVIE-20K-153-3274990-00

PATIENT
  Age: 66 Year
  Sex: Female
  Weight: 53 kg

DRUGS (4)
  1. COLACE ENEMA [Concomitant]
     Indication: COLITIS ULCERATIVE
     Dosage: 2GM/100ML
     Route: 054
     Dates: start: 20190123, end: 20191215
  2. HUMIRA [Suspect]
     Active Substance: ADALIMUMAB
     Indication: COLITIS ULCERATIVE
     Route: 058
     Dates: start: 20190826, end: 20191104
  3. MESALAZINE [Concomitant]
     Active Substance: MESALAMINE
     Indication: COLITIS ULCERATIVE
     Route: 048
     Dates: start: 20190221, end: 20191215
  4. PREDNISOLONE. [Concomitant]
     Active Substance: PREDNISOLONE
     Indication: COLITIS ULCERATIVE
     Route: 048
     Dates: start: 20181113, end: 20191125

REACTIONS (2)
  - Altered state of consciousness [Unknown]
  - Tuberculosis [Fatal]

NARRATIVE: CASE EVENT DATE: 20191125
